FAERS Safety Report 17011424 (Version 1)
Quarter: 2019Q4

REPORT INFORMATION
  Report Type: Spontaneous
  Country: US (occurrence: US)
  Receive Date: 20191108
  Receipt Date: 20191108
  Transmission Date: 20200122
  Serious: No
  Sender: FDA-Public Use
  Company Number: US-NOVOPROD-666961

PATIENT
  Age: 62 Year
  Sex: Female
  Weight: 187 kg

DRUGS (2)
  1. TRESIBA [Suspect]
     Active Substance: INSULIN DEGLUDEC
     Dosage: INSULIN INCREASED BY 5-UNIT INCREMENTS EVERY DAY, REACHING 30 UNITS
     Route: 058
  2. TRESIBA [Suspect]
     Active Substance: INSULIN DEGLUDEC
     Indication: TYPE 2 DIABETES MELLITUS
     Dosage: INSULIN INCREASED BY 5-UNIT INCREMENTS EVERY DAY, REACHING 30 UNITS
     Route: 058

REACTIONS (3)
  - Blood glucose increased [Unknown]
  - Irritable bowel syndrome [Unknown]
  - Inflammatory bowel disease [Unknown]
